FAERS Safety Report 17239634 (Version 1)
Quarter: 2020Q1

REPORT INFORMATION
  Report Type: Spontaneous
  Country: US (occurrence: US)
  Receive Date: 20200106
  Receipt Date: 20200106
  Transmission Date: 20200409
  Serious: No
  Sender: FDA-Public Use
  Company Number: US-EPIC PHARMA LLC-2019EPC00058

PATIENT
  Sex: Female

DRUGS (1)
  1. DOXYCYCLINE HYCLATE. [Suspect]
     Active Substance: DOXYCYCLINE HYCLATE
     Dosage: 100 MG, ONCE
     Dates: start: 20190225

REACTIONS (4)
  - Paraesthesia [Unknown]
  - Erythema [Unknown]
  - Feeling hot [Unknown]
  - Formication [Unknown]

NARRATIVE: CASE EVENT DATE: 20190225
